FAERS Safety Report 17262830 (Version 3)
Quarter: 2020Q1

REPORT INFORMATION
  Report Type: Report from Study
  Country: BE (occurrence: BE)
  Receive Date: 20200113
  Receipt Date: 20200221
  Transmission Date: 20200409
  Serious: Yes (Hospitalization, Other)
  Sender: FDA-Public Use
  Company Number: BE-MYLANLABS-2020M1002589

PATIENT
  Age: 65 Year
  Sex: Female
  Weight: 49 kg

DRUGS (14)
  1. LEUCOVORIN                         /00566701/ [Suspect]
     Active Substance: LEUCOVORIN
     Dosage: MOST RECENT DOSE ON 30/NOV/2016
     Route: 042
     Dates: start: 20160406, end: 20161130
  2. CAPECITABINE. [Suspect]
     Active Substance: CAPECITABINE
     Indication: COLORECTAL CANCER
     Dosage: UNK
     Route: 048
  3. LEUCOVORIN                         /00566701/ [Suspect]
     Active Substance: LEUCOVORIN
     Indication: COLORECTAL CANCER
     Dosage: 36 CYCLES
     Route: 042
     Dates: start: 20140908, end: 20160323
  4. PERFUSALGAN [Concomitant]
     Active Substance: ACETAMINOPHEN
     Dosage: UNK
     Route: 065
     Dates: start: 20160824
  5. XYZALL [Concomitant]
     Active Substance: LEVOCETIRIZINE DIHYDROCHLORIDE
     Dosage: UNK
     Route: 065
     Dates: start: 20160824
  6. BEVACIZUMAB. [Suspect]
     Active Substance: BEVACIZUMAB
     Indication: COLORECTAL CANCER
     Dosage: 23 CYCLES
     Route: 042
     Dates: start: 20140922, end: 20160323
  7. FLUOROURACIL. [Suspect]
     Active Substance: FLUOROURACIL
     Dosage: MOST RECENT DOSE ON 30/NOV/2016
     Route: 042
     Dates: start: 20160406, end: 20161214
  8. FLUOROURACIL. [Suspect]
     Active Substance: FLUOROURACIL
     Indication: COLORECTAL CANCER
     Dosage: 36 CYCLES
     Route: 042
     Dates: start: 20140908, end: 20160323
  9. FORLAX [Concomitant]
     Active Substance: POLYETHYLENE GLYCOL 4000
     Dosage: UNK
     Route: 065
     Dates: start: 201503
  10. OXALIPLATIN. [Suspect]
     Active Substance: OXALIPLATIN
     Indication: COLORECTAL CANCER
     Dosage: MOST RECENT DOSE ON 26/OCT/2016
     Route: 042
     Dates: start: 20160406, end: 20161214
  11. BEVACIZUMAB. [Suspect]
     Active Substance: BEVACIZUMAB
     Dosage: MOST RECENT DOSE OF BEVACIZUMAB ON 30/NOV/2016
     Route: 042
     Dates: start: 20160406, end: 20161130
  12. IRINOTECAN [Concomitant]
     Active Substance: IRINOTECAN
     Indication: COLORECTAL CANCER
     Dosage: 36 CYCLES
     Route: 042
     Dates: start: 20140908, end: 20160323
  13. SOLU-MEDROL [Concomitant]
     Active Substance: METHYLPREDNISOLONE SODIUM SUCCINATE
     Dosage: 125 MILLIGRAM
     Route: 065
     Dates: start: 20160824
  14. DIPHANTOINE [Concomitant]
     Active Substance: PHENYTOIN
     Dosage: UNK

REACTIONS (14)
  - Abdominal pain [Recovering/Resolving]
  - Influenza like illness [Recovered/Resolved]
  - Iron deficiency [Not Recovered/Not Resolved]
  - Neuropathy peripheral [Not Recovered/Not Resolved]
  - Atrial fibrillation [Not Recovered/Not Resolved]
  - Anaemia [Not Recovered/Not Resolved]
  - Rectal abscess [Not Recovered/Not Resolved]
  - Stomatitis [Recovered/Resolved]
  - Drug hypersensitivity [Recovered/Resolved]
  - Gastrointestinal sounds abnormal [Not Recovered/Not Resolved]
  - Fatigue [Not Recovered/Not Resolved]
  - Dry mouth [Not Recovered/Not Resolved]
  - Vitamin B complex deficiency [Not Recovered/Not Resolved]
  - Nasopharyngitis [Recovered/Resolved]

NARRATIVE: CASE EVENT DATE: 20160518
